FAERS Safety Report 7889977-X (Version None)
Quarter: 2011Q4

REPORT INFORMATION
  Report Type: 
  Country: None (occurrence: None)
  Receive Date: 20111103
  Receipt Date: 20111101
  Transmission Date: 20120403
  Serious: Yes (Death)
  Sender: FDA-Public Use
  Company Number: US-VERTEX PHARMACEUTICALS INC.-AE-2011-002855

PATIENT
  Age: 53 Year
  Sex: Male

DRUGS (3)
  1. RIBAVIRIN [Concomitant]
     Indication: HEPATITIS C
  2. PEGASYS [Concomitant]
     Indication: HEPATITIS C
  3. INCIVEK [Suspect]
     Indication: HEPATITIS C
     Route: 048

REACTIONS (1)
  - HAEMORRHAGE [None]
